FAERS Safety Report 7569963-X (Version None)
Quarter: 2011Q2

REPORT INFORMATION
  Report Type: 
  Country: None (occurrence: None)
  Receive Date: 20110622
  Receipt Date: 20110622
  Transmission Date: 20111010
  Serious: Yes (Death)
  Sender: FDA-Public Use
  Company Number: None

PATIENT

DRUGS (1)
  1. MODAFINIL [Suspect]
     Indication: SLEEP DISORDER

REACTIONS (1)
  - COMPLETED SUICIDE [None]
